FAERS Safety Report 21286832 (Version 1)
Quarter: 2022Q3

REPORT INFORMATION
  Report Type: Spontaneous
  Country: US (occurrence: None)
  Receive Date: 20220902
  Receipt Date: 20220902
  Transmission Date: 20221027
  Serious: Yes (Hospitalization)
  Sender: FDA-Public Use
  Company Number: None

PATIENT
  Age: 56 Year
  Sex: Male
  Weight: 72.73 kg

DRUGS (2)
  1. CISPLATIN [Suspect]
     Active Substance: CISPLATIN
     Dates: end: 20220826
  2. ALIMTA [Suspect]
     Active Substance: PEMETREXED DISODIUM
     Dates: end: 20220826

REACTIONS (6)
  - Dyspnoea [None]
  - Haematocrit decreased [None]
  - Haemoglobin decreased [None]
  - Heart rate increased [None]
  - Haematemesis [None]
  - Faeces discoloured [None]

NARRATIVE: CASE EVENT DATE: 20220829
